FAERS Safety Report 9552035 (Version 1)
Quarter: 2013Q3

REPORT INFORMATION
  Report Type: Report from Study
  Country: BR (occurrence: BR)
  Receive Date: 20130925
  Receipt Date: 20130925
  Transmission Date: 20140515
  Serious: Yes (Other)
  Sender: FDA-Public Use
  Company Number: PHHY2013BR104718

PATIENT
  Age: 62 Year
  Sex: Male

DRUGS (11)
  1. INDACATEROL [Suspect]
     Indication: EMPHYSEMA
     Dosage: 150 UG, QD
  2. INDACATEROL [Suspect]
     Indication: OFF LABEL USE
  3. TIOTROPIUM [Concomitant]
     Indication: EMPHYSEMA
     Dosage: 5 UG, QD
  4. BISOPROLOL [Concomitant]
     Dosage: UNK UKN, UNK
  5. FUROSEMIDE [Concomitant]
     Dosage: UNK UKN, UNK
  6. ISOSORBIDE MONONITRATE [Concomitant]
     Dosage: UNK UKN, UNK
  7. CANDESARTAN [Concomitant]
     Dosage: UNK UKN, UNK
  8. ACETYLSALICYLIC ACID [Concomitant]
     Dosage: UNK UKN, UNK
  9. GLIMEPIRIDE [Concomitant]
     Dosage: UNK UKN, UNK
  10. METFORMIN [Concomitant]
     Dosage: UNK UKN, UNK
  11. ROSUVASTATIN [Concomitant]
     Dosage: UNK UKN, UNK

REACTIONS (6)
  - Sleep study abnormal [Unknown]
  - Carbon monoxide diffusing capacity decreased [Unknown]
  - Functional residual capacity decreased [Unknown]
  - Oxygen saturation decreased [Unknown]
  - Total lung capacity decreased [Unknown]
  - Drug effect incomplete [Unknown]
